FAERS Safety Report 23543600 (Version 1)
Quarter: 2024Q1

REPORT INFORMATION
  Report Type: Spontaneous
  Country: CH (occurrence: CH)
  Receive Date: 20240220
  Receipt Date: 20240220
  Transmission Date: 20240410
  Serious: Yes (Other)
  Sender: FDA-Public Use
  Company Number: CH-BRISTOL-MYERS SQUIBB COMPANY-2024-025817

PATIENT
  Age: 57 Year
  Sex: Male

DRUGS (5)
  1. OPDIVO [Suspect]
     Active Substance: NIVOLUMAB
     Indication: Oesophageal squamous cell carcinoma
     Dosage: DOSE : UNAVILABLE;     FREQ : UNAVAILABLE
     Dates: start: 20220602
  2. OPDIVO [Suspect]
     Active Substance: NIVOLUMAB
     Dosage: DOSE : UNAVILABLE;     FREQ : UNAVAILABLE
     Dates: start: 20221117
  3. OPDIVO [Suspect]
     Active Substance: NIVOLUMAB
     Dosage: DOSE : UNAVILABLE;     FREQ : UNAVAILABLE
     Dates: start: 20230223, end: 20230629
  4. CISPLATIN [Concomitant]
     Active Substance: CISPLATIN
     Indication: Oesophageal squamous cell carcinoma
     Dosage: DOSE : UNAVILABLE;     FREQ : UNAVAILABLE
     Dates: start: 20220602, end: 20221020
  5. FLUOROURACIL [Concomitant]
     Active Substance: FLUOROURACIL
     Indication: Oesophageal squamous cell carcinoma
     Dosage: DOSE : UNAVILABLE;     FREQ : UNAVAILABLE (5-FU IN HALF DOSAGE FOR DPYD MUTATION)
     Dates: start: 20220602, end: 20221020

REACTIONS (5)
  - Malignant neoplasm progression [Unknown]
  - Metastases to lymph nodes [Unknown]
  - Shock haemorrhagic [Unknown]
  - Upper gastrointestinal haemorrhage [Unknown]
  - Hepatic lesion [Unknown]

NARRATIVE: CASE EVENT DATE: 20221115
